FAERS Safety Report 5040567-6 (Version None)
Quarter: 2006Q2

REPORT INFORMATION
  Report Type: 
  Country: None (occurrence: None)
  Receive Date: 20060630
  Receipt Date: 20060605
  Transmission Date: 20061013
  Serious: Yes (Hospitalization)
  Sender: FDA-Public Use
  Company Number: US-ROCHE-450646

PATIENT
  Age: 57 Year
  Sex: Female
  Weight: 85.6 kg

DRUGS (7)
  1. CAPECITABINE [Suspect]
     Route: 048
     Dates: start: 20060512, end: 20060530
  2. AVASTIN [Suspect]
     Route: 042
     Dates: start: 20060512, end: 20060609
  3. OXALIPLATIN [Suspect]
     Route: 042
     Dates: start: 20060512, end: 20060609
  4. COUMADIN [Concomitant]
     Dates: start: 20060511, end: 20060531
  5. PREVACID [Concomitant]
     Dates: start: 20060615
  6. COLACE [Concomitant]
     Dates: start: 20060526, end: 20060531
  7. LORTAB [Concomitant]
     Dates: start: 20060530, end: 20060530

REACTIONS (4)
  - INCISION SITE COMPLICATION [None]
  - RETCHING [None]
  - WOUND COMPLICATION [None]
  - WOUND DEHISCENCE [None]
